FAERS Safety Report 6043194-7 (Version None)
Quarter: 2009Q1

REPORT INFORMATION
  Report Type: 
  Country: None (occurrence: None)
  Receive Date: 20090119
  Receipt Date: 20090107
  Transmission Date: 20090719
  Serious: Yes (Hospitalization)
  Sender: FDA-Public Use
  Company Number: FR-ELI_LILLY_AND_COMPANY-FR200901001037

PATIENT
  Age: 74 Year
  Sex: Female

DRUGS (2)
  1. BYETTA [Suspect]
     Indication: TYPE 2 DIABETES MELLITUS
     Route: 058
     Dates: start: 20080901
  2. BYETTA [Suspect]
     Dates: start: 20090105

REACTIONS (5)
  - DIVERTICULITIS [None]
  - DYSPEPSIA [None]
  - PERITONITIS [None]
  - SIGMOIDITIS [None]
  - SUPERINFECTION [None]
